FAERS Safety Report 5108971-5 (Version None)
Quarter: 2006Q3

REPORT INFORMATION
  Report Type: 
  Country: None (occurrence: None)
  Receive Date: 20060920
  Receipt Date: 20060713
  Transmission Date: 20061208
  Serious: Yes (Other)
  Sender: FDA-Public Use
  Company Number: PHBS2006RU10573

PATIENT
  Age: 35 Year
  Sex: Male

DRUGS (2)
  1. LESCOL XL [Suspect]
     Indication: DYSLIPIDAEMIA
     Dosage: 80 MG/DAY
     Route: 048
  2. BETA BLOCKING AGENTS [Concomitant]

REACTIONS (1)
  - ANGINA PECTORIS [None]
